FAERS Safety Report 7942813-5 (Version None)
Quarter: 2011Q4

REPORT INFORMATION
  Report Type: 
  Country: None (occurrence: None)
  Receive Date: 20111128
  Receipt Date: 20111121
  Transmission Date: 20120403
  Serious: Yes (Other)
  Sender: FDA-Public Use
  Company Number: US-AMGEN-USASP2011061616

PATIENT
  Age: 50 Year
  Sex: Female

DRUGS (2)
  1. ENBREL [Suspect]
     Indication: RHEUMATOID ARTHRITIS
     Dosage: 50 MG, QWK
     Dates: start: 20111101, end: 20111121
  2. METHOTREXATE [Concomitant]

REACTIONS (9)
  - BLEPHAROSPASM [None]
  - INJECTION SITE PAIN [None]
  - NASAL DISCOMFORT [None]
  - GINGIVAL BLEEDING [None]
  - MUSCULOSKELETAL CHEST PAIN [None]
  - MUSCLE SPASMS [None]
  - SKIN DISCOLOURATION [None]
  - LIVER FUNCTION TEST ABNORMAL [None]
  - DYSPNOEA [None]
